FAERS Safety Report 9319159 (Version 1)
Quarter: 2013Q2

REPORT INFORMATION
  Report Type: Spontaneous
  Country: JP (occurrence: JP)
  Receive Date: 20130530
  Receipt Date: 20130530
  Transmission Date: 20140414
  Serious: No
  Sender: FDA-Public Use
  Company Number: JP-ELI_LILLY_AND_COMPANY-JP201303000593

PATIENT
  Age: 28 Year
  Sex: Female

DRUGS (2)
  1. STRATTERA [Suspect]
     Indication: ATTENTION DEFICIT/HYPERACTIVITY DISORDER
     Dosage: 5 MG, BID
     Route: 048
     Dates: start: 20121019, end: 20121101
  2. STRATTERA [Suspect]
     Dosage: 10 MG, BID
     Route: 048
     Dates: start: 20121102, end: 20121116

REACTIONS (2)
  - Extrasystoles [Recovered/Resolved]
  - Abdominal pain [Recovered/Resolved]
